FAERS Safety Report 16878225 (Version 2)
Quarter: 2019Q4

REPORT INFORMATION
  Report Type: Spontaneous
  Country: JP (occurrence: JP)
  Receive Date: 20191002
  Receipt Date: 20191018
  Transmission Date: 20200122
  Serious: Yes (Death, Life-Threatening, Hospitalization, Other)
  Sender: FDA-Public Use
  Company Number: JP-SAKK-2019SA269095AA

PATIENT
  Age: 65 Year
  Sex: Female
  Weight: 38.5 kg

DRUGS (2)
  1. FABRAZYME [Suspect]
     Active Substance: AGALSIDASE BETA
     Indication: FABRY^S DISEASE
     Dosage: 15 MG, FREQUENCY: UNKNOWN
     Route: 041
     Dates: start: 200505, end: 200511
  2. FABRAZYME [Suspect]
     Active Substance: AGALSIDASE BETA
     Indication: FABRY^S DISEASE
     Dosage: 35 MG, QOW
     Route: 041
     Dates: start: 200405, end: 200511

REACTIONS (30)
  - Cardiac failure [Unknown]
  - Decreased appetite [Unknown]
  - Cardiac murmur [Unknown]
  - Oedema peripheral [Unknown]
  - Nephrosclerosis [Unknown]
  - Enterocolitis [Unknown]
  - Chronic kidney disease [Unknown]
  - Opportunistic infection [Unknown]
  - Seizure [Unknown]
  - Pulmonary oedema [Unknown]
  - Pulmonary embolism [Unknown]
  - Pulmonary congestion [Unknown]
  - Hepatic congestion [Unknown]
  - Gastrointestinal sounds abnormal [Unknown]
  - Renal failure [Unknown]
  - Cardiac failure chronic [Unknown]
  - Diabetes mellitus [Unknown]
  - Pulmonary infarction [Unknown]
  - Disease progression [Fatal]
  - Blood pressure decreased [Unknown]
  - Organising pneumonia [Unknown]
  - Multiple organ dysfunction syndrome [Unknown]
  - Extrasystoles [Unknown]
  - Urine output decreased [Unknown]
  - Pyrexia [Unknown]
  - Depressed level of consciousness [Unknown]
  - Diarrhoea [Unknown]
  - Respiratory failure [Unknown]
  - Dyskinesia [Unknown]
  - Cardiac hypertrophy [Unknown]

NARRATIVE: CASE EVENT DATE: 2005
